FAERS Safety Report 16244329 (Version 1)
Quarter: 2019Q2

REPORT INFORMATION
  Report Type: Spontaneous
  Country: JP (occurrence: JP)
  Receive Date: 20190426
  Receipt Date: 20190426
  Transmission Date: 20190711
  Serious: Yes (Other)
  Sender: FDA-Public Use
  Company Number: JP-OTSUKA-2019_014706

PATIENT

DRUGS (2)
  1. HANP [Concomitant]
     Active Substance: CARPERITIDE
     Indication: CARDIAC FAILURE
     Dosage: UNK
     Route: 065
  2. SAMSCA [Suspect]
     Active Substance: TOLVAPTAN
     Indication: CARDIAC FAILURE
     Dosage: 7.5 MG, UNK
     Route: 048

REACTIONS (1)
  - Glomerular filtration rate decreased [Unknown]
